FAERS Safety Report 6066399-8 (Version None)
Quarter: 2009Q1

REPORT INFORMATION
  Report Type: 
  Country: None (occurrence: None)
  Receive Date: 20090205
  Receipt Date: 20090202
  Transmission Date: 20090719
  Serious: Yes (Hospitalization)
  Sender: FDA-Public Use
  Company Number: JP-BAYER-200910172BYL

PATIENT
  Age: 91 Year
  Sex: Female
  Weight: 39 kg

DRUGS (6)
  1. ASPIRIN [Suspect]
     Indication: ANGINA PECTORIS
     Dosage: TOTAL DAILY DOSE: 100 MG  UNIT DOSE: 100 MG
     Route: 048
     Dates: start: 20040204, end: 20081225
  2. BUFFERIN [Suspect]
     Indication: ANGINA PECTORIS
     Dosage: TOTAL DAILY DOSE: 81 MG  UNIT DOSE: 81 MG
     Route: 048
     Dates: start: 20021011
  3. RIZE [Concomitant]
     Indication: INSOMNIA
     Route: 048
     Dates: start: 19980318, end: 20081225
  4. CONIEL [Concomitant]
     Indication: HYPERTENSION
     Dosage: AS USED: 2 MG  UNIT DOSE: 2 MG
     Route: 048
     Dates: start: 20021224, end: 20081225
  5. ZAMEC [Concomitant]
     Indication: PROPHYLAXIS AGAINST GASTROINTESTINAL ULCER
     Dosage: TOTAL DAILY DOSE: 300 MG  UNIT DOSE: 150 MG
     Route: 048
     Dates: start: 20030120, end: 20081225
  6. GLORIAMIN [Concomitant]
     Indication: PROPHYLAXIS AGAINST GASTROINTESTINAL ULCER
     Route: 048
     Dates: start: 20030120, end: 20081225

REACTIONS (6)
  - APHASIA [None]
  - CEREBRAL INFARCTION [None]
  - DYSPHAGIA [None]
  - HEMIPLEGIA [None]
  - MELAENA [None]
  - SMALL INTESTINAL HAEMORRHAGE [None]
